FAERS Safety Report 18960554 (Version 2)
Quarter: 2021Q2

REPORT INFORMATION
  Report Type: Spontaneous
  Country: US (occurrence: US)
  Receive Date: 20210302
  Receipt Date: 20210615
  Transmission Date: 20210717
  Serious: No
  Sender: FDA-Public Use
  Company Number: US-009507513-2102USA007953

PATIENT
  Sex: Male

DRUGS (3)
  1. ZOLINZA [Suspect]
     Active Substance: VORINOSTAT
     Dosage: UNK, MANTEINANCE FOR 2 WEEKS
     Route: 048
  2. ZOLINZA [Suspect]
     Active Substance: VORINOSTAT
     Indication: SENSITISATION
     Dosage: 400 MILLIGRAM, 400 MG BY MOUTH DAILY FOR 2 WK
     Route: 048
  3. ZOLINZA [Suspect]
     Active Substance: VORINOSTAT
     Dosage: 400 MG DAILY IN 2?WEEK INTERVALS FOR 3 MONTHS
     Route: 048

REACTIONS (2)
  - Product use in unapproved indication [Unknown]
  - Haematotoxicity [Unknown]
